FAERS Safety Report 20251904 (Version 1)
Quarter: 2021Q4

REPORT INFORMATION
  Report Type: Report from Study
  Country: US (occurrence: US)
  Receive Date: 20211229
  Receipt Date: 20211229
  Transmission Date: 20220303
  Serious: No
  Sender: FDA-Public Use
  Company Number: US-CLOVIS ONCOLOGY-CLO-2021-001077

PATIENT
  Sex: Female

DRUGS (1)
  1. RUBRACA [Suspect]
     Active Substance: RUCAPARIB CAMSYLATE
     Indication: Ovarian cancer
     Dosage: 600 MILLIGRAM, BID
     Route: 048
     Dates: start: 20210626

REACTIONS (7)
  - Hypoaesthesia [Not Recovered/Not Resolved]
  - Pain in extremity [Unknown]
  - Arthralgia [Not Recovered/Not Resolved]
  - Joint stiffness [Unknown]
  - Pain [Unknown]
  - Fatigue [Not Recovered/Not Resolved]
  - Dyspepsia [Unknown]

NARRATIVE: CASE EVENT DATE: 20210101
